FAERS Safety Report 20047617 (Version 2)
Quarter: 2021Q4

REPORT INFORMATION
  Report Type: Spontaneous
  Country: IN (occurrence: IN)
  Receive Date: 20211109
  Receipt Date: 20211123
  Transmission Date: 20220303
  Serious: Yes (Hospitalization)
  Sender: FDA-Public Use
  Company Number: IN-TORRENT-00002943

PATIENT
  Age: 68 Year
  Sex: Female

DRUGS (14)
  1. ESOMEPRAZOLE [Suspect]
     Active Substance: ESOMEPRAZOLE
     Indication: Product used for unknown indication
     Dosage: BD (TWICE A DAY)
     Route: 042
     Dates: start: 20211028
  2. D 25 [Concomitant]
     Indication: Product used for unknown indication
     Dosage: UNKNOWN
     Route: 042
  3. ONDANSETRON HYDROCHLORIDE [Concomitant]
     Active Substance: ONDANSETRON HYDROCHLORIDE
     Indication: Product used for unknown indication
     Dosage: 2 TIMES DAILY (BD)
     Route: 042
  4. GERBISA L [Concomitant]
     Indication: Product used for unknown indication
     Dosage: UNKNOWN
  5. LESURIDE [Concomitant]
     Indication: Product used for unknown indication
     Dosage: TDS
     Route: 042
  6. METAPRO XL [Concomitant]
     Indication: Product used for unknown indication
     Dosage: UNKNOWN
  7. METRONIDAZOLE [Concomitant]
     Active Substance: METRONIDAZOLE
     Indication: Product used for unknown indication
     Dosage: TDS (THREE TIME A DAY)
     Route: 042
  8. NS/RL [Concomitant]
     Indication: Product used for unknown indication
     Route: 042
  9. Zostum 1.5 mg [Concomitant]
     Indication: Product used for unknown indication
     Dosage: BD (TWICE A DAY)
     Route: 042
  10. TRAMADOL HYDROCHLORIDE [Concomitant]
     Active Substance: TRAMADOL HYDROCHLORIDE
     Indication: Product used for unknown indication
     Dosage: TDS
  11. Looz enema [Concomitant]
     Indication: Product used for unknown indication
     Dosage: STAT
  12. BUTYLSCOPOLAMINE BROMIDE [Concomitant]
     Active Substance: BUTYLSCOPOLAMINE BROMIDE
     Indication: Product used for unknown indication
     Dosage: STAT, 1 AMPULE
     Route: 042
  13. Panpad [Concomitant]
     Indication: Product used for unknown indication
     Dosage: 1-0-1
     Route: 042
  14. CONRAM [Concomitant]
     Indication: Product used for unknown indication
     Route: 042

REACTIONS (1)
  - Hypoglycaemia [Not Recovered/Not Resolved]

NARRATIVE: CASE EVENT DATE: 20211028
